FAERS Safety Report 8567716-7 (Version None)
Quarter: 2012Q3

REPORT INFORMATION
  Report Type: 
  Country: None (occurrence: None)
  Receive Date: 20120803
  Receipt Date: 20120727
  Transmission Date: 20120928
  Serious: Yes (Other)
  Sender: FDA-Public Use
  Company Number: JP-009507513-1207JPN012609

PATIENT

DRUGS (3)
  1. TELAVIC [Suspect]
     Indication: HEPATITIS C
     Route: 048
     Dates: start: 20120509, end: 20120606
  2. PEG-INTRON [Suspect]
     Indication: HEPATITIS C
     Dosage: 1.0MCG/KG/WEEK
     Route: 058
     Dates: start: 20120509, end: 20120530
  3. REBETOL [Suspect]
     Indication: HEPATITIS C
     Route: 048
     Dates: start: 20120509, end: 20120606

REACTIONS (1)
  - ANAEMIA [None]
